FAERS Safety Report 9445487 (Version 1)
Quarter: 2013Q3

REPORT INFORMATION
  Report Type: Report from Study
  Country: AR (occurrence: AR)
  Receive Date: 20130807
  Receipt Date: 20130807
  Transmission Date: 20140515
  Serious: Yes (Other)
  Sender: FDA-Public Use
  Company Number: PHHY2013AR084966

PATIENT
  Sex: Female

DRUGS (1)
  1. DIOVAN [Suspect]
     Dosage: 0.5 DF, (80 MG) A DAY
     Route: 048
     Dates: start: 201307

REACTIONS (3)
  - Sciatica [Recovering/Resolving]
  - Pain in extremity [Recovering/Resolving]
  - Wrong technique in drug usage process [Unknown]
